FAERS Safety Report 4709263-6 (Version None)
Quarter: 2005Q3

REPORT INFORMATION
  Report Type: 
  Country: None (occurrence: None)
  Receive Date: 20050706
  Receipt Date: 20050622
  Transmission Date: 20060218
  Serious: Yes (Hospitalization)
  Sender: FDA-Public Use
  Company Number: DSA_25492_2004

PATIENT
  Age: 89 Year
  Sex: Female

DRUGS (10)
  1. ENALAPRIL MALEATE [Suspect]
     Indication: HYPERTENSION
     Dosage: 5 MG BID PO
     Route: 048
     Dates: start: 20040101, end: 20050114
  2. OMEPRAZOLE [Suspect]
     Dosage: 20 MG Q DAY
     Dates: end: 20050114
  3. TRIAMTERENE AND HYDROCHLOROTHIAZIDE [Concomitant]
  4. ACETAMINOPHEN [Concomitant]
  5. ALPRAZOALM [Concomitant]
  6. HALOPERIDOL [Concomitant]
  7. ISOSORBIDE MONONITRATE [Concomitant]
  8. NICERGOLINE [Concomitant]
  9. PIRIBEDIL [Concomitant]
  10. PROPOXYPHENE HCL [Concomitant]

REACTIONS (2)
  - PEMPHIGOID [None]
  - THERAPY NON-RESPONDER [None]
